FAERS Safety Report 8282109-8 (Version None)
Quarter: 2012Q2

REPORT INFORMATION
  Report Type: 
  Country: None (occurrence: None)
  Receive Date: 20120413
  Receipt Date: 20120403
  Transmission Date: 20120825
  Serious: Yes (Hospitalization, Other)
  Sender: FDA-Public Use
  Company Number: US-SANOFI-AVENTIS-2012SA013089

PATIENT
  Age: 64 Year
  Sex: Female
  Weight: 83.4 kg

DRUGS (4)
  1. TAXOTERE [Suspect]
     Dosage: EVERY 3 WEEKS
     Route: 041
     Dates: start: 20120201, end: 20120201
  2. XELODA [Suspect]
     Dates: start: 20120111, end: 20120118
  3. DEXAMETHASONE [Concomitant]
  4. TAXOTERE [Suspect]
     Dosage: EVERY 3 WEEKS
     Route: 041
     Dates: start: 20120111, end: 20120111

REACTIONS (6)
  - FALL [None]
  - RASH [None]
  - PALMAR-PLANTAR ERYTHRODYSAESTHESIA SYNDROME [None]
  - FRACTURE [None]
  - WOUND [None]
  - NEUTROPENIA [None]
